FAERS Safety Report 5215473-4 (Version None)
Quarter: 2007Q1

REPORT INFORMATION
  Report Type: 
  Country: None (occurrence: None)
  Receive Date: 20070119
  Receipt Date: 20070119
  Transmission Date: 20070707
  Serious: Yes (Death, Life-Threatening, Hospitalization)
  Sender: FDA-Public Use
  Company Number: None

PATIENT
  Age: 22 Year
  Sex: Male
  Weight: 72.5755 kg

DRUGS (1)
  1. OXYCONTIN [Suspect]
     Indication: INTERVERTEBRAL DISC PROTRUSION
     Dosage: ONE   EVERY 12 HRS   PO
     Route: 048
     Dates: start: 20040413, end: 20040417

REACTIONS (2)
  - DRUG DEPENDENCE [None]
  - OVERDOSE [None]
